FAERS Safety Report 8834033 (Version 1)
Quarter: 2012Q4

REPORT INFORMATION
  Report Type: Spontaneous
  Country: US (occurrence: None)
  Receive Date: 20121010
  Receipt Date: 20121010
  Transmission Date: 20130627
  Serious: Yes (Hospitalization, Other)
  Sender: FDA-Public Use
  Company Number: None

PATIENT
  Age: 22 Year
  Sex: Female
  Weight: 89.36 kg

DRUGS (2)
  1. MIRENA IUD [Suspect]
     Indication: BIRTH CONTROL
  2. MIRENA IUD [Suspect]
     Indication: HEAVY PERIODS

REACTIONS (8)
  - Ovarian cyst [None]
  - Fallopian tube disorder [None]
  - Polyp [None]
  - Pelvic inflammatory disease [None]
  - Salpingitis [None]
  - Salpingitis [None]
  - Adnexa uteri pain [None]
  - Infertility [None]
